FAERS Safety Report 24538666 (Version 1)
Quarter: 2024Q4

REPORT INFORMATION
  Report Type: Spontaneous
  Country: CA (occurrence: CA)
  Receive Date: 20241023
  Receipt Date: 20241023
  Transmission Date: 20250115
  Serious: Yes (Death)
  Sender: CELLTRION
  Company Number: CA-PFIZER INC-202400205431

PATIENT

DRUGS (4)
  1. INFLECTRA [Suspect]
     Active Substance: INFLIXIMAB-DYYB
     Indication: Colitis ulcerative
     Dosage: 1000 MG, EVERY 8 WEEK
     Route: 042
     Dates: start: 20210218
  2. INFLECTRA [Suspect]
     Active Substance: INFLIXIMAB-DYYB
     Dosage: 1000 MG, AFTER 8 WEEKS AND 1 DAY
     Route: 042
     Dates: start: 20240506
  3. INFLECTRA [Suspect]
     Active Substance: INFLIXIMAB-DYYB
     Dosage: 1000 MG, AFTER 8 WEEKS AND 1 DAY
     Route: 042
     Dates: start: 20240702
  4. DIGOXIN [Concomitant]
     Active Substance: DIGOXIN
     Indication: Atrial fibrillation
     Dosage: UNK

REACTIONS (2)
  - Death [Fatal]
  - Heart rate decreased [Unknown]

NARRATIVE: CASE EVENT DATE: 20240702
